FAERS Safety Report 23091227 (Version 4)
Quarter: 2024Q2

REPORT INFORMATION
  Report Type: Other
  Country: US (occurrence: None)
  Receive Date: 20231020
  Receipt Date: 20240521
  Transmission Date: 20240716
  Serious: Yes (Hospitalization, Other)
  Sender: FDA-Public Use
  Company Number: US-ROCHE-3439837

PATIENT
  Age: 64 Year
  Sex: Female
  Weight: 55.388 kg

DRUGS (11)
  1. OCREVUS [Suspect]
     Active Substance: OCRELIZUMAB
     Indication: Relapsing-remitting multiple sclerosis
     Dosage: 600 MG EVERY 6 MONTHS?DOT: 23-MAR-2022, 03-OCT2022, 06-APR-2022
     Route: 042
     Dates: start: 20220323, end: 20230403
  2. OCREVUS [Suspect]
     Active Substance: OCRELIZUMAB
     Route: 042
     Dates: start: 202204, end: 20230403
  3. RITUXAN [Suspect]
     Active Substance: RITUXIMAB
     Indication: Rheumatoid arthritis
     Route: 041
  4. PLAVIX [Concomitant]
     Active Substance: CLOPIDOGREL BISULFATE
  5. RAMIPIL [Concomitant]
  6. ATORVASTATIN [Concomitant]
     Active Substance: ATORVASTATIN
  7. METOPROLOL TARTRATE [Concomitant]
     Active Substance: METOPROLOL TARTRATE
  8. IRON [Concomitant]
     Active Substance: IRON
  9. VITAMIN D3 [Concomitant]
     Active Substance: CHOLECALCIFEROL
  10. TYLENOL [Concomitant]
     Active Substance: ACETAMINOPHEN
  11. LEFLUNOMIDE [Concomitant]
     Active Substance: LEFLUNOMIDE

REACTIONS (13)
  - Rectal haemorrhage [Unknown]
  - Haemoglobin decreased [Recovered/Resolved]
  - Mallory-Weiss syndrome [Unknown]
  - Gastrooesophageal reflux disease [Not Recovered/Not Resolved]
  - Renal cell carcinoma [Not Recovered/Not Resolved]
  - Blindness [Not Recovered/Not Resolved]
  - Lower gastrointestinal haemorrhage [Unknown]
  - Pain [Recovering/Resolving]
  - Renal cancer [Recovered/Resolved]
  - Fall [Unknown]
  - Limb injury [Unknown]
  - Tooth injury [Unknown]
  - Lip pain [Unknown]

NARRATIVE: CASE EVENT DATE: 20221001
